FAERS Safety Report 10015992 (Version 2)
Quarter: 2014Q1

REPORT INFORMATION
  Report Type: Spontaneous
  Country: US (occurrence: US)
  Receive Date: 20140317
  Receipt Date: 20140317
  Transmission Date: 20141002
  Serious: Yes (Hospitalization, Other)
  Sender: FDA-Public Use
  Company Number: US-UCBSA-108250

PATIENT
  Age: 27 Year
  Sex: Male
  Weight: 98.89 kg

DRUGS (3)
  1. CIMZIA [Suspect]
     Indication: CROHN^S DISEASE
     Dates: start: 2011
  2. CIMZIA [Suspect]
     Indication: CROHN^S DISEASE
     Dates: start: 201211, end: 201306
  3. CIMZIA [Suspect]
     Indication: CROHN^S DISEASE
     Dates: start: 2013

REACTIONS (8)
  - Intestinal haemorrhage [Recovered/Resolved]
  - Abdominal mass [Recovered/Resolved]
  - Anaesthetic complication [Recovered/Resolved]
  - Heart rate increased [Recovered/Resolved]
  - Hypotension [Recovered/Resolved]
  - Pain [Recovered/Resolved]
  - Diarrhoea [Recovered/Resolved]
  - Inappropriate schedule of drug administration [Recovered/Resolved]
